FAERS Safety Report 11755157 (Version 2)
Quarter: 2015Q4

REPORT INFORMATION
  Report Type: Report from Study
  Country: US (occurrence: US)
  Receive Date: 20151119
  Receipt Date: 20151201
  Transmission Date: 20160304
  Serious: No
  Sender: FDA-Public Use
  Company Number: US-AMGEN-USASL2015120099

PATIENT
  Age: 34 Year
  Sex: Female

DRUGS (1)
  1. ENBREL [Suspect]
     Active Substance: ETANERCEPT
     Indication: PSORIATIC ARTHROPATHY
     Dosage: 50 MG, QWK (ONCE WEEKLY)
     Route: 065
     Dates: start: 20151006

REACTIONS (14)
  - Injection site erythema [Unknown]
  - Malaise [Unknown]
  - Gait disturbance [Unknown]
  - Muscle spasms [Unknown]
  - Injection site discolouration [Unknown]
  - Cough [Unknown]
  - Injection site reaction [Unknown]
  - Injection site pain [Unknown]
  - Frequent bowel movements [Unknown]
  - Injection site induration [Unknown]
  - Mucous stools [Unknown]
  - Dry throat [Unknown]
  - Nasopharyngitis [Unknown]
  - Injection site warmth [Unknown]

NARRATIVE: CASE EVENT DATE: 2015
